FAERS Safety Report 5251850-3 (Version None)
Quarter: 2007Q1

REPORT INFORMATION
  Report Type: 
  Country: None (occurrence: None)
  Receive Date: 20070228
  Receipt Date: 20070209
  Transmission Date: 20070707
  Serious: Yes (Hospitalization)
  Sender: FDA-Public Use
  Company Number: FR-PFIZER INC-2007005110

PATIENT
  Age: 56 Year
  Sex: Male
  Weight: 71 kg

DRUGS (3)
  1. SOLU-MEDROL [Suspect]
     Indication: COLITIS
     Route: 042
  2. INFLIXIMAB [Suspect]
     Indication: NEURITIS
     Route: 042
  3. AZATHIOPRINE [Suspect]
     Indication: COLITIS
     Route: 042

REACTIONS (1)
  - LUNG INFECTION [None]
